FAERS Safety Report 12109319 (Version 1)
Quarter: 2016Q1

REPORT INFORMATION
  Report Type: Spontaneous
  Country: US (occurrence: None)
  Receive Date: 20160222
  Receipt Date: 20160222
  Transmission Date: 20160526
  Serious: No
  Sender: FDA-Public Use
  Company Number: None

PATIENT
  Age: 47 Year
  Sex: Female

DRUGS (5)
  1. XELJANZ [Suspect]
     Active Substance: TOFACITINIB CITRATE
     Indication: RHEUMATOID ARTHRITIS
     Route: 048
  2. BUPROPION. [Concomitant]
     Active Substance: BUPROPION
  3. IRON [Concomitant]
     Active Substance: IRON
  4. METHOTREXATE [Concomitant]
     Active Substance: METHOTREXATE
  5. PROZAC [Concomitant]
     Active Substance: FLUOXETINE HYDROCHLORIDE

REACTIONS (4)
  - Vomiting [None]
  - Cough [None]
  - Influenza [None]
  - Pyrexia [None]

NARRATIVE: CASE EVENT DATE: 20160219
